FAERS Safety Report 19913751 (Version 1)
Quarter: 2021Q4

REPORT INFORMATION
  Report Type: Spontaneous
  Country: FR (occurrence: FR)
  Receive Date: 20211004
  Receipt Date: 20211004
  Transmission Date: 20220303
  Serious: Yes (Hospitalization, Congenital Anomaly, Other)
  Sender: FDA-Public Use
  Company Number: FR-ABBVIE-21K-056-4102851-00

PATIENT
  Sex: Male
  Weight: 2.47 kg

DRUGS (8)
  1. VALPROATE SODIUM [Suspect]
     Active Substance: VALPROATE SODIUM
     Indication: Maternal exposure timing unspecified
     Route: 064
  2. VALPROATE SODIUM [Suspect]
     Active Substance: VALPROATE SODIUM
     Indication: Maternal exposure timing unspecified
     Route: 064
  3. VALPROATE SODIUM [Suspect]
     Active Substance: VALPROATE SODIUM
     Indication: Product used for unknown indication
     Route: 065
     Dates: start: 201709
  4. VALPROATE SODIUM [Suspect]
     Active Substance: VALPROATE SODIUM
     Indication: Product used for unknown indication
     Route: 065
     Dates: start: 201709
  5. FOLIC ACID [Concomitant]
     Active Substance: FOLIC ACID
     Indication: Maternal exposure timing unspecified
  6. ZINC [Concomitant]
     Active Substance: ZINC
     Indication: Maternal exposure timing unspecified
  7. VITAMIN K1 [Concomitant]
     Active Substance: PHYTONADIONE
     Indication: Maternal exposure timing unspecified
  8. SELENIUM [Concomitant]
     Active Substance: SELENIUM
     Indication: Maternal exposure timing unspecified

REACTIONS (28)
  - Obesity [Not Recovered/Not Resolved]
  - Pyelonephritis [Not Recovered/Not Resolved]
  - Foetal malnutrition [Recovered/Resolved]
  - Foetal heart rate disorder [Recovered/Resolved]
  - Jaundice neonatal [Recovered/Resolved]
  - Ear disorder [Recovered/Resolved]
  - Rash [Recovered/Resolved]
  - Eczema [Recovered/Resolved]
  - Astigmatism [Not Recovered/Not Resolved]
  - Speech disorder developmental [Not Recovered/Not Resolved]
  - Limb malformation [Not Recovered/Not Resolved]
  - Psychomotor skills impaired [Not Recovered/Not Resolved]
  - Fine motor delay [Not Recovered/Not Resolved]
  - Fatigue [Not Recovered/Not Resolved]
  - Language disorder [Not Recovered/Not Resolved]
  - Psychomotor retardation [Not Recovered/Not Resolved]
  - Behaviour disorder [Recovered/Resolved]
  - Cognitive disorder [Recovered/Resolved]
  - Fine motor skill dysfunction [Recovered/Resolved]
  - Psychomotor skills impaired [Recovered/Resolved]
  - Learning disorder [Unknown]
  - Strabismus [Not Recovered/Not Resolved]
  - Syndactyly [Recovered/Resolved]
  - Emotional disorder [Recovered/Resolved]
  - Dysmorphism [Recovered/Resolved]
  - Attention deficit hyperactivity disorder [Recovered/Resolved]
  - Deafness [Recovered/Resolved]
  - Foetal exposure during pregnancy [Unknown]

NARRATIVE: CASE EVENT DATE: 20060906
